FAERS Safety Report 8449361-7 (Version None)
Quarter: 2012Q2

REPORT INFORMATION
  Report Type: 
  Country: None (occurrence: None)
  Receive Date: 20120619
  Receipt Date: 20120607
  Transmission Date: 20120825
  Serious: Yes (Other)
  Sender: FDA-Public Use
  Company Number: ES-ACTELION-A-CH2012-67135

PATIENT
  Age: 41 Year
  Sex: Female

DRUGS (5)
  1. CHLOROQUINE [Concomitant]
  2. TRACLEER [Suspect]
     Dosage: 62.5 MG, BID
     Route: 048
  3. TRACLEER [Suspect]
     Indication: PERIPHERAL ISCHAEMIA
     Dosage: 125 MG, BID
     Route: 048
  4. DEFLAZACORT [Concomitant]
  5. ACETYLSALICYLIC ACID SRT [Concomitant]

REACTIONS (10)
  - TOE AMPUTATION [None]
  - HYPOTENSION [None]
  - PERIPHERAL ISCHAEMIA [None]
  - ERYTHEMA [None]
  - OEDEMA PERIPHERAL [None]
  - CONCOMITANT DISEASE AGGRAVATED [None]
  - ISCHAEMIC ULCER [None]
  - HEADACHE [None]
  - NECROSIS [None]
  - DISEASE RECURRENCE [None]
